FAERS Safety Report 8123376-0 (Version None)
Quarter: 2012Q1

REPORT INFORMATION
  Report Type: 
  Country: None (occurrence: None)
  Receive Date: 20120208
  Receipt Date: 20120207
  Transmission Date: 20120608
  Serious: Yes (Hospitalization, Other)
  Sender: FDA-Public Use
  Company Number: US-PFIZER INC-2012029725

PATIENT
  Sex: Female
  Weight: 81.633 kg

DRUGS (24)
  1. CHANTIX [Suspect]
     Indication: SMOKING CESSATION THERAPY
     Dosage: UNK
  2. PLAVIX [Concomitant]
     Dosage: 75 MG, UNK
  3. EFFIENT [Concomitant]
     Dosage: 10 MG, 1X/DAY
  4. METOPROLOL [Concomitant]
     Indication: HYPERTENSION
     Dosage: 50 MG, 1X/DAY
  5. DICYCLOMINE [Concomitant]
     Dosage: 100 MG, 2X/DAY
  6. HYDROXYZINE [Concomitant]
     Dosage: 50 MG, 2X/DAY
  7. PRAVASTATIN [Concomitant]
     Dosage: 40 MG, UNK
  8. LISINOPRIL [Concomitant]
     Dosage: 5 MG, 1X/DAY
  9. COMBIVENT [Concomitant]
     Indication: ASTHMA
     Dosage: UNK
  10. PREDNISONE [Concomitant]
     Dosage: 20 MG, UNK
  11. CARVEDILOL [Concomitant]
     Dosage: 6.25 MG, 2X/DAY
  12. FLOVENT [Concomitant]
     Indication: ASTHMA
     Dosage: TWO TIMES A DAY
  13. ALBUTEROL [Concomitant]
     Indication: ASTHMA
     Dosage: UNK
  14. CLONAZEPAM [Concomitant]
     Dosage: 0.35 MG, 3X/DAY
  15. METOCLOPRAMIDE [Concomitant]
     Dosage: 10 MG, 1X/DAY
  16. LISINOPRIL [Concomitant]
     Dosage: 10 MG, 1X/DAY
  17. TERBINAFINE [Concomitant]
     Dosage: 250 MG, 1X/DAY
  18. GEODON [Concomitant]
     Dosage: 40 MG, 2X/DAY
  19. ASPIRIN [Concomitant]
     Dosage: 325 MG, 1X/DAY
  20. ATORVASTATIN [Concomitant]
     Dosage: 30 MG, 1X/DAY
  21. SINGULAIR [Concomitant]
     Dosage: 10 MG, 1X/DAY
  22. TRAZODONE [Concomitant]
     Dosage: 100 MG, 1X/DAY
  23. NAPROXEN [Concomitant]
     Dosage: 500 MG, 2X/DAY
  24. VENTOLIN [Concomitant]
     Indication: ASTHMA
     Dosage: AS NEEDED

REACTIONS (1)
  - MYOCARDIAL INFARCTION [None]
